FAERS Safety Report 8061900 (Version 2)
Quarter: 2013Q3

REPORT INFORMATION
  Report Type: Spontaneous
  Country: US (occurrence: US)
  Receive Date: 20110730
  Receipt Date: 20130812
  Transmission Date: 20140515
  Serious: Yes (Hospitalization)
  Sender: FDA-Public Use
  Company Number: US-B.I. PHARMACEUTICALS,INC./RIDGEFIELD-2011-BP-16815BP

PATIENT
  Age: 78 Year
  Sex: Female

DRUGS (7)
  1. PRADAXA [Suspect]
     Indication: CEREBROVASCULAR ACCIDENT PROPHYLAXIS
     Dosage: 300 MG
     Dates: start: 20110608
  2. PRADAXA [Suspect]
     Indication: ATRIAL FIBRILLATION
  3. MULTAQ [Concomitant]
     Dosage: 400 MG
     Dates: start: 20110608
  4. LISINOPRIL [Concomitant]
     Dosage: 20 MG
     Dates: start: 20060125
  5. CARVEDILOL [Concomitant]
     Dosage: 3.125 MG
     Dates: start: 2010
  6. SIMVASTATIN [Concomitant]
     Dosage: 10 MG
     Dates: start: 20101020
  7. FUROSEMIDE [Concomitant]
     Dosage: 20 MG
     Dates: start: 201009

REACTIONS (1)
  - Gastrointestinal haemorrhage [Recovered/Resolved]
